FAERS Safety Report 11446462 (Version 1)
Quarter: 2015Q3

REPORT INFORMATION
  Report Type: Spontaneous
  Country: US (occurrence: US)
  Receive Date: 20150831
  Receipt Date: 20150831
  Transmission Date: 20151125
  Serious: No
  Sender: FDA-Public Use
  Company Number: US-ELI_LILLY_AND_COMPANY-US200812003388

PATIENT
  Age: 28 Year
  Sex: Female

DRUGS (2)
  1. CYMBALTA [Suspect]
     Active Substance: DULOXETINE HYDROCHLORIDE
     Indication: DEPRESSION
     Dosage: 30 MG, UNK
     Dates: start: 200808, end: 200811
  2. XANAX [Concomitant]
     Active Substance: ALPRAZOLAM

REACTIONS (4)
  - Drug withdrawal syndrome [Not Recovered/Not Resolved]
  - Mood altered [Not Recovered/Not Resolved]
  - Restlessness [Not Recovered/Not Resolved]
  - Crying [Not Recovered/Not Resolved]

NARRATIVE: CASE EVENT DATE: 200811
